FAERS Safety Report 14985657 (Version 1)
Quarter: 2018Q2

REPORT INFORMATION
  Report Type: Spontaneous
  Country: US (occurrence: US)
  Receive Date: 20180607
  Receipt Date: 20180607
  Transmission Date: 20180711
  Serious: No
  Sender: FDA-Public Use
  Company Number: US-DUCHESNAY INC.-2049137

PATIENT
  Age: 48 Year
  Sex: Female
  Weight: 68.18 kg

DRUGS (1)
  1. OSPHENA [Suspect]
     Active Substance: OSPEMIFENE
     Indication: PRODUCT USED FOR UNKNOWN INDICATION
     Dates: start: 20180110, end: 20180509

REACTIONS (1)
  - Night sweats [None]

NARRATIVE: CASE EVENT DATE: 20180110
